FAERS Safety Report 9267136 (Version 4)
Quarter: 2013Q3

REPORT INFORMATION
  Report Type: Spontaneous
  Country: US (occurrence: US)
  Receive Date: 20130502
  Receipt Date: 20130724
  Transmission Date: 20140515
  Serious: Yes (Hospitalization)
  Sender: FDA-Public Use
  Company Number: US-009507513-1304USA017474

PATIENT
  Age: 63 Year
  Sex: Female
  Weight: 71.2 kg

DRUGS (7)
  1. PEGINTRON [Suspect]
     Indication: HEPATITIS C
     Dosage: 100 MICROGRAM,WEEKLY
     Route: 058
     Dates: start: 2013
  2. RIBASPHERE [Suspect]
     Indication: HEPATITIS C
     Dosage: UNK
     Dates: start: 2013
  3. INCIVEK [Suspect]
     Indication: HEPATITIS C
     Dosage: UNK
     Dates: start: 2013, end: 201305
  4. TOPIRAMATE [Concomitant]
  5. OMEGA-3 MARINE TRIGLYCERIDES [Concomitant]
  6. GINKGO [Concomitant]
  7. ASCORBIC ACID [Concomitant]

REACTIONS (9)
  - Transfusion [Unknown]
  - Anaemia [Unknown]
  - Bed rest [Unknown]
  - Weight decreased [Unknown]
  - Insomnia [Unknown]
  - Malaise [Unknown]
  - Chills [Unknown]
  - Pyrexia [Unknown]
  - Injection site reaction [Unknown]
